FAERS Safety Report 19572823 (Version 1)
Quarter: 2021Q3

REPORT INFORMATION
  Report Type: Spontaneous
  Country: NO (occurrence: NO)
  Receive Date: 20210716
  Receipt Date: 20210716
  Transmission Date: 20211014
  Serious: Yes (Death)
  Sender: FDA-Public Use
  Company Number: NO-TEVA-2021-NO-1932642

PATIENT
  Age: 85 Year
  Sex: Male

DRUGS (2)
  1. DICLOXACILLIN ALTERNOVA [Concomitant]
     Indication: WOUND INFECTION
     Dosage: 500 MG ,J01CF01 ? DICLOXACILLIN
     Route: 048
     Dates: start: 20210521, end: 20210528
  2. DOXYLIN [Suspect]
     Active Substance: DOXYCYCLINE
     Indication: WOUND INFECTION
     Dosage: 100 MG , J01AA02 ? DOXYCYCLINE
     Dates: start: 20210616, end: 20210622

REACTIONS (4)
  - Abdominal pain [Fatal]
  - Megacolon [Fatal]
  - Pseudomembranous colitis [Fatal]
  - Diarrhoea [Fatal]

NARRATIVE: CASE EVENT DATE: 20210624
